FAERS Safety Report 11262859 (Version 1)
Quarter: 2015Q3

REPORT INFORMATION
  Report Type: Spontaneous
  Country: US (occurrence: US)
  Receive Date: 20150710
  Receipt Date: 20150710
  Transmission Date: 20151125
  Serious: Yes (Other)
  Sender: FDA-Public Use
  Company Number: US-TEVA-577194USA

PATIENT
  Sex: Female

DRUGS (1)
  1. COPAXONE [Suspect]
     Active Substance: GLATIRAMER ACETATE
     Indication: MULTIPLE SCLEROSIS
     Dosage: UNKNOWN DOSE STRENGTH

REACTIONS (7)
  - Injection site reaction [Unknown]
  - Injection site urticaria [Unknown]
  - Injection site bruising [Unknown]
  - Chills [Unknown]
  - Dyspnoea [Unknown]
  - Loss of consciousness [Unknown]
  - Back pain [Unknown]
